FAERS Safety Report 6824590-4 (Version None)
Quarter: 2010Q3

REPORT INFORMATION
  Report Type: 
  Country: None (occurrence: None)
  Receive Date: 20100708
  Receipt Date: 20061219
  Transmission Date: 20110219
  Serious: No
  Sender: FDA-Public Use
  Company Number: US-PFIZER INC-2006134821

PATIENT
  Sex: Male
  Weight: 80.74 kg

DRUGS (22)
  1. CHANTIX [Suspect]
     Indication: SMOKING CESSATION THERAPY
     Dates: start: 20061001
  2. METOCLOPRAMIDE [Concomitant]
  3. COREG [Concomitant]
  4. ISOSORBIDE MONONITRATE [Concomitant]
  5. LIPITOR [Concomitant]
  6. LISINOPRIL [Concomitant]
  7. LUMIGAN [Concomitant]
  8. NORVASC [Concomitant]
  9. PAXIL [Concomitant]
  10. PREDNISONE [Concomitant]
  11. NEURONTIN [Concomitant]
  12. ADVAIR DISKUS 100/50 [Concomitant]
  13. BRIMONIDINE TARTRATE [Concomitant]
  14. NITROGLYCERIN [Concomitant]
  15. ACETYLSALICYLIC ACID [Concomitant]
  16. CALCIUM CARBONATE [Concomitant]
  17. MULTI-VITAMINS [Concomitant]
  18. OMEPRAZOLE [Concomitant]
  19. PROMETHAZINE [Concomitant]
  20. TERIPARATIDE [Concomitant]
  21. SPIRIVA [Concomitant]
  22. ALBUTEROL [Concomitant]

REACTIONS (1)
  - TOBACCO USER [None]
